FAERS Safety Report 10252590 (Version 1)
Quarter: 2014Q2

REPORT INFORMATION
  Report Type: Spontaneous
  Country: US (occurrence: US)
  Receive Date: 20140623
  Receipt Date: 20140623
  Transmission Date: 20141212
  Serious: No
  Sender: FDA-Public Use
  Company Number: US-009507513-1406USA008193

PATIENT
  Age: 4 Year
  Sex: Male

DRUGS (6)
  1. ORGATRAX [Suspect]
     Indication: SELF INJURIOUS BEHAVIOUR
     Dosage: 10 MG, TID
  2. GABAPENTIN [Concomitant]
     Dosage: UNK UNK, BID
  3. SERTRALINE HYDROCHLORIDE [Concomitant]
     Dosage: 5 MG, QD
  4. CLONIDINE [Concomitant]
     Dosage: 0.25 MG, QAM
  5. CLONIDINE [Concomitant]
     Dosage: 0.50 MG, QPM
  6. CETRIZINE [Concomitant]
     Dosage: 10 ML, QD

REACTIONS (1)
  - Drug ineffective [Unknown]
